FAERS Safety Report 12109875 (Version 1)
Quarter: 2016Q1

REPORT INFORMATION
  Report Type: Spontaneous
  Country: US (occurrence: None)
  Receive Date: 20160222
  Receipt Date: 20160222
  Transmission Date: 20160526
  Serious: Yes (Hospitalization)
  Sender: FDA-Public Use
  Company Number: None

PATIENT
  Age: 28 Year
  Sex: Male

DRUGS (7)
  1. RASBURICASE [Suspect]
     Active Substance: RASBURICASE
     Indication: HYPERURICAEMIA
     Route: 042
     Dates: start: 20150909
  2. ALLOPURINOL. [Concomitant]
     Active Substance: ALLOPURINOL
  3. OXYCODONE [Concomitant]
     Active Substance: OXYCODONE
  4. PHYTONADIONE. [Concomitant]
     Active Substance: PHYTONADIONE
  5. BENZOCAINE-MENTHOL [Concomitant]
  6. PIPERACILLIN/TAZOBACTAM [Concomitant]
     Active Substance: PIPERACILLIN SODIUM\TAZOBACTAM SODIUM
  7. ACETAMINOPHEN. [Concomitant]
     Active Substance: ACETAMINOPHEN

REACTIONS (3)
  - Blood lactate dehydrogenase increased [None]
  - Hyperbilirubinaemia [None]
  - Haemolytic anaemia [None]

NARRATIVE: CASE EVENT DATE: 20150910
